FAERS Safety Report 10701875 (Version 2)
Quarter: 2015Q1

REPORT INFORMATION
  Report Type: Spontaneous
  Country: US (occurrence: US)
  Receive Date: 20150109
  Receipt Date: 20150109
  Transmission Date: 20150721
  Serious: No
  Sender: FDA-Public Use
  Company Number: US-GLAXOSMITHKLINE-A1086167A

PATIENT
  Sex: Female

DRUGS (3)
  1. BACTROBAN [Suspect]
     Active Substance: MUPIROCIN\MUPIROCIN CALCIUM
     Indication: EPISTAXIS
     Dosage: UNK, U
     Route: 065
     Dates: start: 20100825
  2. BACTROBAN [Suspect]
     Active Substance: MUPIROCIN\MUPIROCIN CALCIUM
     Indication: NASAL DRYNESS
  3. BACTROBAN [Suspect]
     Active Substance: MUPIROCIN\MUPIROCIN CALCIUM
     Indication: EPISTAXIS
     Dates: start: 20100804

REACTIONS (2)
  - Epistaxis [Unknown]
  - Off label use [Unknown]
